FAERS Safety Report 7488536-0 (Version None)
Quarter: 2011Q2

REPORT INFORMATION
  Report Type: 
  Country: None (occurrence: None)
  Receive Date: 20110518
  Receipt Date: 20110510
  Transmission Date: 20111010
  Serious: Yes (Other)
  Sender: FDA-Public Use
  Company Number: US-RB-025002-11

PATIENT
  Age: 18 Year
  Sex: Male

DRUGS (1)
  1. DELSYM [Suspect]
     Dosage: DRANK HALF A BOTTLE
     Route: 048
     Dates: start: 20110509

REACTIONS (4)
  - HALLUCINATION [None]
  - OVERDOSE [None]
  - EUPHORIC MOOD [None]
  - ABNORMAL BEHAVIOUR [None]
